FAERS Safety Report 8100580-9 (Version None)
Quarter: 2012Q1

REPORT INFORMATION
  Report Type: 
  Country: None (occurrence: None)
  Receive Date: 20120129
  Receipt Date: 20111116
  Transmission Date: 20120608
  Serious: Yes (Hospitalization)
  Sender: FDA-Public Use
  Company Number: US-ABBOTT-11P-163-0875621-00

PATIENT
  Sex: Female

DRUGS (1)
  1. HUMIRA [Suspect]
     Indication: PSORIASIS
     Route: 058
     Dates: start: 20110201

REACTIONS (7)
  - VOMITING [None]
  - PYREXIA [None]
  - DEHYDRATION [None]
  - KIDNEY INFECTION [None]
  - ARTHRALGIA [None]
  - CYSTITIS [None]
  - CHILLS [None]
